FAERS Safety Report 5030885-X (Version None)
Quarter: 2006Q2

REPORT INFORMATION
  Report Type: 
  Country: None (occurrence: None)
  Receive Date: 20060619
  Receipt Date: 20060607
  Transmission Date: 20061013
  Serious: Yes (Hospitalization)
  Sender: FDA-Public Use
  Company Number: T200600638

PATIENT
  Age: 26 Year
  Sex: Female
  Weight: 70 kg

DRUGS (6)
  1. NALTREXONE HYDROCHLORIDE [Suspect]
     Dosage: 50 MG, QD
  2. VENLAFAXINE HCL [Concomitant]
  3. TRAMADOL HCL [Concomitant]
  4. DIAZEPAM [Concomitant]
  5. INDOMETHACIN [Concomitant]
  6. HEROIN (DIAMORPHINE) [Concomitant]

REACTIONS (10)
  - BUTTOCK PAIN [None]
  - C-REACTIVE PROTEIN INCREASED [None]
  - DISCOMFORT [None]
  - HYPERHIDROSIS [None]
  - INADEQUATE ANALGESIA [None]
  - INTERVERTEBRAL DISC PROTRUSION [None]
  - PYREXIA [None]
  - RED BLOOD CELL SEDIMENTATION RATE INCREASED [None]
  - SACROILIITIS [None]
  - WHITE BLOOD CELL COUNT INCREASED [None]
